FAERS Safety Report 8846441 (Version 2)
Quarter: 2012Q4

REPORT INFORMATION
  Report Type: 
  Country: US (occurrence: US)
  Receive Date: 20121017
  Receipt Date: 20121023
  Transmission Date: 20130627
  Serious: No
  Sender: FDA-Public Use
  Company Number: US-BAYER-2012-099893

PATIENT
  Age: 60 Year
  Sex: Male

DRUGS (2)
  1. NEXAVAR [Suspect]
     Indication: THYROID CANCER
     Dosage: 400 mg, BID
     Route: 048
     Dates: start: 20120919, end: 20120920
  2. NEXAVAR [Suspect]
     Indication: THYROID CANCER
     Dosage: UNK
     Dates: start: 20120922

REACTIONS (3)
  - Adverse drug reaction [None]
  - Blood pressure increased [Recovering/Resolving]
  - Pain in extremity [Recovering/Resolving]
